FAERS Safety Report 5919563-X (Version None)
Quarter: 2008Q4

REPORT INFORMATION
  Report Type: 
  Country: None (occurrence: None)
  Receive Date: 20081015
  Receipt Date: 20071129
  Transmission Date: 20090506
  Serious: Yes (Other)
  Sender: FDA-Public Use
  Company Number: US-BRISTOL-MYERS SQUIBB COMPANY-13999016

PATIENT
  Sex: Female

DRUGS (1)
  1. KENALOG-40 [Suspect]
     Indication: SINUSITIS
     Route: 058
     Dates: start: 20010901

REACTIONS (2)
  - LIPOATROPHY [None]
  - MEDICATION ERROR [None]
